FAERS Safety Report 21182314 (Version 3)
Quarter: 2022Q4

REPORT INFORMATION
  Report Type: Report from Study
  Country: BE (occurrence: BE)
  Receive Date: 20220807
  Receipt Date: 20221101
  Transmission Date: 20230113
  Serious: Yes (Hospitalization, Other)
  Sender: FDA-Public Use
  Company Number: BE-BRISTOL-MYERS SQUIBB COMPANY-2022-085861

PATIENT
  Age: 72 Year
  Sex: Female
  Weight: 52.1 kg

DRUGS (32)
  1. DEXAMETHASONE [Suspect]
     Active Substance: DEXAMETHASONE
     Indication: Plasma cell myeloma
     Route: 048
     Dates: start: 20220322, end: 20220503
  2. POMALIDOMIDE [Suspect]
     Active Substance: POMALIDOMIDE
     Indication: Plasma cell myeloma
     Route: 048
     Dates: start: 20220322, end: 20220404
  3. POMALIDOMIDE [Suspect]
     Active Substance: POMALIDOMIDE
     Route: 048
     Dates: start: 20220419, end: 20220419
  4. POMALIDOMIDE [Suspect]
     Active Substance: POMALIDOMIDE
     Route: 048
     Dates: start: 20220322, end: 20220503
  5. DARATUMUMAB [Suspect]
     Active Substance: DARATUMUMAB
     Indication: Plasma cell myeloma
     Dosage: DAY 1, DAY 8
     Route: 058
     Dates: start: 20220322, end: 20220503
  6. ACYCLOVIR [Concomitant]
     Active Substance: ACYCLOVIR
     Indication: Chronic obstructive pulmonary disease
     Dosage: 1 IN 1 D
     Route: 055
  7. ACYCLOVIR [Concomitant]
     Active Substance: ACYCLOVIR
     Indication: Antiviral prophylaxis
     Dosage: 2 DOSAGE FORMS,1 IN 1 D
     Route: 048
     Dates: start: 20200306
  8. CALCIUM CARBONATE\CHOLECALCIFEROL [Concomitant]
     Active Substance: CALCIUM CARBONATE\CHOLECALCIFEROL
     Indication: Osteoporosis
     Dosage: 1 IN 0.5 D
     Route: 048
  9. CALCIUM CARBONATE\CHOLECALCIFEROL [Concomitant]
     Active Substance: CALCIUM CARBONATE\CHOLECALCIFEROL
     Route: 048
     Dates: start: 20200626
  10. PRIVIGEN [Concomitant]
     Active Substance: HUMAN IMMUNOGLOBULIN G
     Indication: Diarrhoea
     Dosage: 1 IN 1 AS REQUIRED
     Route: 048
  11. PRIVIGEN [Concomitant]
     Active Substance: HUMAN IMMUNOGLOBULIN G
     Indication: Prophylaxis
     Dosage: 1 IN 1 AS REQUIRED
     Route: 048
  12. PRIVIGEN [Concomitant]
     Active Substance: HUMAN IMMUNOGLOBULIN G
     Dosage: ONCE
     Route: 048
     Dates: start: 20220405, end: 20220405
  13. PANADOL [Concomitant]
     Active Substance: ACETAMINOPHEN
     Indication: Pain in extremity
     Dosage: 1 IN 0.5 D
     Route: 048
  14. PANADOL [Concomitant]
     Active Substance: ACETAMINOPHEN
     Indication: Pain in extremity
     Dosage: 1 IN 1 AS REQUIRED
     Route: 048
     Dates: start: 20200306
  15. AVELOX [Concomitant]
     Active Substance: MOXIFLOXACIN HYDROCHLORIDE
     Indication: Upper respiratory tract infection
     Dosage: ONCE
     Route: 042
     Dates: start: 20220405, end: 20220405
  16. AVELOX [Concomitant]
     Active Substance: MOXIFLOXACIN HYDROCHLORIDE
     Indication: Influenza
     Dosage: ONCE
     Route: 042
     Dates: start: 20220324, end: 20220330
  17. AVELOX [Concomitant]
     Active Substance: MOXIFLOXACIN HYDROCHLORIDE
     Dates: start: 20220331, end: 20220406
  18. QUESTRAN [Concomitant]
     Active Substance: CHOLESTYRAMINE
     Indication: Diarrhoea
     Dosage: 1 IN 1 AS REQUIRED
     Route: 048
     Dates: start: 20211015
  19. FLUTICASONE PROPIONATE\FORMOTEROL FUMARATE [Concomitant]
     Active Substance: FLUTICASONE PROPIONATE\FORMOTEROL FUMARATE
     Indication: Chronic obstructive pulmonary disease
     Route: 055
     Dates: start: 2018
  20. SPIRIVA [Concomitant]
     Active Substance: TIOTROPIUM BROMIDE MONOHYDRATE
     Indication: Chronic obstructive pulmonary disease
     Route: 055
     Dates: start: 2018
  21. ASPIRIN [Concomitant]
     Active Substance: ASPIRIN
     Indication: Colitis ischaemic
     Route: 048
     Dates: start: 20200123
  22. ACETYLCYSTEINE [Concomitant]
     Active Substance: ACETYLCYSTEINE
     Indication: Chronic obstructive pulmonary disease
     Route: 048
     Dates: start: 20200430
  23. ZOLPIDEM TARTRATE [Concomitant]
     Active Substance: ZOLPIDEM TARTRATE
     Indication: Insomnia
     Route: 048
     Dates: start: 20200529
  24. ZOMETA [Concomitant]
     Active Substance: ZOLEDRONIC ACID
     Indication: Prophylaxis
     Route: 042
     Dates: start: 20200626
  25. CALCIUM CHLORIDE\POTASSIUM CHLORIDE\SODIUM LACTATE [Concomitant]
     Active Substance: CALCIUM CHLORIDE\POTASSIUM CHLORIDE\SODIUM LACTATE
     Indication: Prophylaxis
     Dates: start: 20220405, end: 20220407
  26. NEUPOGEN [Concomitant]
     Active Substance: FILGRASTIM
     Indication: Neutrophil count decreased
     Route: 058
     Dates: start: 20220405, end: 20220410
  27. DIFLUCAN [Concomitant]
     Active Substance: FLUCONAZOLE
     Indication: Fungal infection
     Route: 048
     Dates: start: 20220405, end: 20220410
  28. LITICAN [ALIZAPRIDE] [Concomitant]
     Indication: Nausea
     Route: 048
     Dates: start: 20220406, end: 20220406
  29. ULTRA K [Concomitant]
     Indication: Hypokalaemia
     Route: 048
     Dates: start: 20220406, end: 20220406
  30. ULTRA K [Concomitant]
     Route: 048
     Dates: start: 20220407, end: 20220408
  31. NASONEX [Concomitant]
     Active Substance: MOMETASONE FUROATE
     Indication: Influenza
     Route: 065
     Dates: start: 20220413, end: 20220427
  32. NASONEX [Concomitant]
     Active Substance: MOMETASONE FUROATE
     Indication: Nasal congestion

REACTIONS (2)
  - Pneumonia [Recovered/Resolved]
  - Infective exacerbation of chronic obstructive airways disease [Recovered/Resolved]

NARRATIVE: CASE EVENT DATE: 20220405
